FAERS Safety Report 4626904-2 (Version None)
Quarter: 2005Q2

REPORT INFORMATION
  Report Type: 
  Country: None (occurrence: None)
  Receive Date: 20050405
  Receipt Date: 20030605
  Transmission Date: 20051028
  Serious: Yes (Hospitalization, Other)
  Sender: FDA-Public Use
  Company Number: US-MERCK-0306USA00715

PATIENT
  Age: 47 Year
  Sex: Female

DRUGS (19)
  1. VIOXX [Suspect]
     Route: 048
     Dates: start: 19991201
  2. VIOXX [Suspect]
     Route: 048
  3. SERZONE [Concomitant]
     Route: 065
  4. FIORINAL [Concomitant]
     Route: 065
  5. PREVACID [Concomitant]
     Route: 065
  6. LIPITOR [Concomitant]
     Route: 065
  7. ZANAFLEX [Concomitant]
     Route: 065
  8. DEPO-ESTRADIOL [Concomitant]
     Route: 065
  9. ECOTRIN [Concomitant]
     Route: 065
  10. COLACE [Concomitant]
     Route: 065
  11. CARDIZEM [Concomitant]
     Route: 065
  12. SERZONE [Concomitant]
     Route: 065
  13. NEURONTIN [Concomitant]
     Route: 065
  14. ELAVIL [Concomitant]
     Route: 065
  15. ATIVAN [Concomitant]
     Route: 065
  16. AGGRENOX [Concomitant]
     Route: 065
  17. DEPTRAN (DOXEPIN HYDROCHLORIDE) [Concomitant]
     Route: 065
  18. ESTRACE [Concomitant]
     Route: 065
  19. VICODIN [Concomitant]
     Route: 065

REACTIONS (40)
  - ACUTE MYOCARDIAL INFARCTION [None]
  - ADVERSE EVENT [None]
  - ANAEMIA [None]
  - ANGINA PECTORIS [None]
  - CHEST DISCOMFORT [None]
  - CHEST PAIN [None]
  - CONVULSION [None]
  - CORONARY ARTERY DISEASE [None]
  - DRUG INEFFECTIVE [None]
  - DYSPHAGIA [None]
  - FIBROMYALGIA [None]
  - GASTRITIS [None]
  - GASTROOESOPHAGEAL REFLUX DISEASE [None]
  - HAEMORRHOIDS [None]
  - HYPERTENSION [None]
  - HYPOAESTHESIA [None]
  - INFECTIOUS MONONUCLEOSIS [None]
  - INTERVERTEBRAL DISC DEGENERATION [None]
  - LEFT VENTRICULAR END-DIASTOLIC PRESSURE INCREASED [None]
  - LIVER DISORDER [None]
  - LYMPHADENOPATHY [None]
  - MEMORY IMPAIRMENT [None]
  - MIGRAINE [None]
  - MITRAL VALVE INCOMPETENCE [None]
  - MULTI-ORGAN DISORDER [None]
  - MUSCLE SPASMS [None]
  - NIGHT SWEATS [None]
  - PAIN [None]
  - PANCREATITIS [None]
  - PLATELET COUNT DECREASED [None]
  - PNEUMONIA [None]
  - PULMONARY OEDEMA [None]
  - PYODERMA GANGRENOSUM [None]
  - PYREXIA [None]
  - RENAL FAILURE [None]
  - RENAL TUBULAR NECROSIS [None]
  - RESPIRATORY DISORDER [None]
  - RESPIRATORY FAILURE [None]
  - VASCULITIS [None]
  - VISION BLURRED [None]
